FAERS Safety Report 7237800-9 (Version None)
Quarter: 2011Q1

REPORT INFORMATION
  Report Type: 
  Country: None (occurrence: None)
  Receive Date: 20110121
  Receipt Date: 20110112
  Transmission Date: 20110831
  Serious: Yes (Other)
  Sender: FDA-Public Use
  Company Number: GB-JNJFOC-20100905725

PATIENT
  Sex: Male

DRUGS (11)
  1. METHOTREXATE [Concomitant]
  2. INFLIXIMAB, RECOMBINANT [Suspect]
     Indication: ERYTHRODERMIC PSORIASIS
     Route: 042
  3. INFLIXIMAB, RECOMBINANT [Suspect]
     Route: 042
  4. INFLIXIMAB, RECOMBINANT [Suspect]
     Route: 042
  5. INFLIXIMAB, RECOMBINANT [Suspect]
     Route: 042
  6. INFLIXIMAB, RECOMBINANT [Suspect]
     Indication: PSORIATIC ARTHROPATHY
     Route: 042
  7. INFLIXIMAB, RECOMBINANT [Suspect]
     Dosage: 5MG/KG
     Route: 042
  8. METHOTREXATE [Concomitant]
  9. INFLIXIMAB, RECOMBINANT [Suspect]
     Indication: ARTHRITIS
     Route: 042
  10. INFLIXIMAB, RECOMBINANT [Suspect]
     Dosage: 5MG/KG
     Route: 042
  11. INFLIXIMAB, RECOMBINANT [Suspect]
     Dosage: 5MG/KG
     Route: 042

REACTIONS (2)
  - LUPUS-LIKE SYNDROME [None]
  - CHILLS [None]
